FAERS Safety Report 21169730 (Version 1)
Quarter: 2022Q3

REPORT INFORMATION
  Report Type: Spontaneous
  Country: TW (occurrence: TW)
  Receive Date: 20220804
  Receipt Date: 20220804
  Transmission Date: 20221026
  Serious: Yes (Other)
  Sender: FDA-Public Use
  Company Number: TW-IPCA LABORATORIES LIMITED-IPC-2022-TW-000984

PATIENT

DRUGS (3)
  1. HYDROXYCHLOROQUINE [Interacting]
     Active Substance: HYDROXYCHLOROQUINE
     Indication: Product used for unknown indication
     Dosage: 200 MILLIGRAM, QD (4.44 MILLIGRAM/KILOGRAM, QD)
     Route: 065
     Dates: start: 201903
  2. HYDROXYCHLOROQUINE [Interacting]
     Active Substance: HYDROXYCHLOROQUINE
     Dosage: 400 MILLIGRAM, QD (8.88 MILLIGRAM/KILOGRAM, QD)
     Route: 065
     Dates: start: 201909
  3. ANGELICA SINENSIS ROOT [Interacting]
     Active Substance: ANGELICA SINENSIS ROOT
     Indication: Product used for unknown indication
     Dosage: UNK
     Route: 065

REACTIONS (8)
  - Retinopathy [Recovered/Resolved]
  - Cystoid macular oedema [Recovered/Resolved]
  - Retinal toxicity [Recovered/Resolved]
  - Visual field defect [Recovered/Resolved]
  - Maculopathy [Recovered/Resolved]
  - Metamorphopsia [Recovered/Resolved]
  - Overdose [Unknown]
  - Drug interaction [Unknown]
